FAERS Safety Report 8505672-8 (Version None)
Quarter: 2012Q3

REPORT INFORMATION
  Report Type: 
  Country: None (occurrence: None)
  Receive Date: 20120712
  Receipt Date: 20120704
  Transmission Date: 20120928
  Serious: Yes (Hospitalization)
  Sender: FDA-Public Use
  Company Number: JP-009507513-1207JPN000228

PATIENT

DRUGS (2)
  1. REBETOL [Suspect]
     Dosage: THE DIVIDED DOSE FREQUENCY IS UNCERTAIN.
     Route: 048
     Dates: start: 20120105, end: 20120601
  2. PEG-INTRON [Suspect]
     Dosage: DAILY DOSE UNKNOWN
     Route: 058
     Dates: start: 20120105, end: 20120601

REACTIONS (1)
  - OPTIC NEURITIS [None]
